FAERS Safety Report 5994162-2 (Version None)
Quarter: 2008Q4

REPORT INFORMATION
  Report Type: 
  Country: None (occurrence: None)
  Receive Date: 20081212
  Receipt Date: 20080903
  Transmission Date: 20090506
  Serious: No
  Sender: FDA-Public Use
  Company Number: US-ABBOTT-08P-163-0473872-00

PATIENT
  Sex: Female
  Weight: 97.61 kg

DRUGS (4)
  1. HUMIRA [Suspect]
     Indication: CROHN'S DISEASE
     Route: 058
     Dates: start: 20080304, end: 20080304
  2. HUMIRA [Suspect]
     Route: 058
     Dates: start: 20080318, end: 20080318
  3. HUMIRA [Suspect]
     Route: 058
     Dates: start: 20080401, end: 20080401
  4. LEVOTHYROXINE SODIUM [Concomitant]
     Indication: HYPOTHYROIDISM
     Route: 048

REACTIONS (4)
  - ASTHENIA [None]
  - HYPOAESTHESIA [None]
  - LYMPHADENOPATHY [None]
  - PAIN IN EXTREMITY [None]
